FAERS Safety Report 20605702 (Version 2)
Quarter: 2022Q1

REPORT INFORMATION
  Report Type: Report from Study
  Country: US (occurrence: US)
  Receive Date: 20220317
  Receipt Date: 20220324
  Transmission Date: 20220423
  Serious: Yes (Other)
  Sender: FDA-Public Use
  Company Number: US-INSMED, INC.-2022-00631-US

PATIENT
  Sex: Female

DRUGS (1)
  1. ARIKAYCE [Suspect]
     Active Substance: AMIKACIN
     Indication: Mycobacterial infection
     Dosage: 590 MILLIGRAM, QD
     Route: 055
     Dates: end: 20220314

REACTIONS (8)
  - Obstructive airways disorder [Unknown]
  - Deafness [Unknown]
  - Drug interaction [Unknown]
  - Aphonia [Recovering/Resolving]
  - Cough [Unknown]
  - Adverse drug reaction [Unknown]
  - Dyspnoea [Unknown]
  - Off label use [Unknown]
